FAERS Safety Report 25603207 (Version 1)
Quarter: 2025Q3

REPORT INFORMATION
  Report Type: Spontaneous
  Country: EU (occurrence: EU)
  Receive Date: 20250724
  Receipt Date: 20250724
  Transmission Date: 20251020
  Serious: Yes (Life-Threatening, Other)
  Sender: PFIZER
  Company Number: EU-PFIZER INC-202500147953

PATIENT
  Sex: Male

DRUGS (4)
  1. DEXMEDETOMIDINE HYDROCHLORIDE [Suspect]
     Active Substance: DEXMEDETOMIDINE HYDROCHLORIDE
     Route: 045
  2. CAFFEINE [Suspect]
     Active Substance: CAFFEINE
     Indication: Apnoea
     Route: 045
  3. IRON [Concomitant]
     Active Substance: IRON
     Route: 045
  4. VITAMIN D NOS [Concomitant]
     Active Substance: CHOLECALCIFEROL\ERGOCALCIFEROL
     Route: 045

REACTIONS (11)
  - Wrong product administered [Unknown]
  - Product appearance confusion [Unknown]
  - Accidental overdose [Unknown]
  - Hypotonia [Recovered/Resolved]
  - Neurological examination abnormal [Recovered/Resolved]
  - Dyspnoea [Recovered/Resolved]
  - Irregular breathing [Recovered/Resolved]
  - Bradycardia [Recovered/Resolved]
  - Hyperglycaemia [Recovered/Resolved]
  - Blood lactic acid increased [Recovered/Resolved]
  - Hypocapnia [Recovered/Resolved]
